FAERS Safety Report 25868928 (Version 1)
Quarter: 2025Q4

REPORT INFORMATION
  Report Type: Spontaneous
  Country: RU (occurrence: RU)
  Receive Date: 20251001
  Receipt Date: 20251001
  Transmission Date: 20260118
  Serious: Yes (Other)
  Sender: DAIICHI
  Company Number: RU-AstraZeneca-CH-00957051A

PATIENT
  Sex: Female

DRUGS (1)
  1. TRASTUZUMAB DERUXTECAN [Suspect]
     Active Substance: TRASTUZUMAB DERUXTECAN
     Indication: Haematological infection
     Dosage: 5 MILLILITRE PER KILOGRAM, Q3W
     Route: 040

REACTIONS (1)
  - Haematotoxicity [Unknown]
